FAERS Safety Report 7564076-5 (Version None)
Quarter: 2011Q2

REPORT INFORMATION
  Report Type: 
  Country: None (occurrence: None)
  Receive Date: 20110622
  Receipt Date: 20110615
  Transmission Date: 20111010
  Serious: Yes (Other)
  Sender: FDA-Public Use
  Company Number: US-US-EMD SERONO, INC.-7065765

PATIENT
  Sex: Female

DRUGS (7)
  1. EXCEDRIN (MIGRAINE) [Concomitant]
  2. LYRICA [Concomitant]
  3. KLONOPIN [Concomitant]
  4. ZOLOFT [Concomitant]
  5. ESTROGEN PATCH [Concomitant]
  6. REBIF [Suspect]
     Indication: MULTIPLE SCLEROSIS
     Route: 058
     Dates: start: 20030618
  7. LIPITOR [Concomitant]

REACTIONS (1)
  - HEPATIC ADENOMA [None]
